FAERS Safety Report 6029397-6 (Version None)
Quarter: 2009Q1

REPORT INFORMATION
  Report Type: 
  Country: None (occurrence: None)
  Receive Date: 20090105
  Receipt Date: 20081219
  Transmission Date: 20090719
  Serious: Yes (Other)
  Sender: FDA-Public Use
  Company Number: 2008JP005867

PATIENT
  Age: 10 Year
  Sex: Male

DRUGS (3)
  1. PROGRAF [Suspect]
     Dosage: 6 MG/D, ORAL
     Route: 048
  2. NICARDIPINE HCL [Suspect]
     Dates: end: 20081201
  3. SOLU-MEDROL [Concomitant]

REACTIONS (1)
  - TUBULOINTERSTITIAL NEPHRITIS [None]
